FAERS Safety Report 13590954 (Version 1)
Quarter: 2017Q2

REPORT INFORMATION
  Report Type: Report from Study
  Country: US (occurrence: US)
  Receive Date: 20170529
  Receipt Date: 20170529
  Transmission Date: 20170830
  Serious: Yes (Hospitalization, Other)
  Sender: FDA-Public Use
  Company Number: US-GILEAD-2017-0274303

PATIENT
  Age: 65 Year
  Sex: Female

DRUGS (10)
  1. PROVENTIL [Concomitant]
     Active Substance: ALBUTEROL
  2. RESTASIS [Concomitant]
     Active Substance: CYCLOSPORINE
  3. NITROSTAT [Concomitant]
     Active Substance: NITROGLYCERIN
  4. AMBRISENTAN [Suspect]
     Active Substance: AMBRISENTAN
     Indication: PULMONARY HYPERTENSION
     Dosage: 5 MG, QD
     Route: 065
     Dates: start: 20150506
  5. IMDUR [Concomitant]
     Active Substance: ISOSORBIDE MONONITRATE
  6. BONIVA [Concomitant]
     Active Substance: IBANDRONATE SODIUM
  7. CRESTOR [Concomitant]
     Active Substance: ROSUVASTATIN CALCIUM
  8. FERRIC SULFATE [Concomitant]
     Active Substance: FERRIC SULFATE
  9. SYMBICORT [Concomitant]
     Active Substance: BUDESONIDE\FORMOTEROL FUMARATE DIHYDRATE
  10. EVOXAC [Concomitant]
     Active Substance: CEVIMELINE HYDROCHLORIDE

REACTIONS (1)
  - Retinal tear [Recovered/Resolved]

NARRATIVE: CASE EVENT DATE: 20161228
